FAERS Safety Report 4425160-8 (Version None)
Quarter: 2004Q3

REPORT INFORMATION
  Report Type: 
  Country: None (occurrence: None)
  Receive Date: 20040809
  Receipt Date: 20040726
  Transmission Date: 20050211
  Serious: Yes (Other)
  Sender: FDA-Public Use
  Company Number: US-2004-029375

PATIENT
  Age: 59 Year
  Sex: Female
  Weight: 107 kg

DRUGS (4)
  1. CLIMARA [Suspect]
     Indication: HORMONE REPLACEMENT THERAPY
     Dosage: 0.1 MG/D, CONT, TRANSDERMAL
     Route: 062
     Dates: start: 19950101
  2. NORVASC        /DEN/ (AMLODIPINE BESILATE) [Concomitant]
  3. LOZOL [Concomitant]
  4. XANAX [Concomitant]

REACTIONS (1)
  - RECTAL CANCER [None]
